FAERS Safety Report 9730189 (Version 1)
Quarter: 2013Q4

REPORT INFORMATION
  Report Type: Spontaneous
  Country: US (occurrence: US)
  Receive Date: 20131204
  Receipt Date: 20131204
  Transmission Date: 20140711
  Serious: No
  Sender: FDA-Public Use
  Company Number: US-ENDO PHARMACEUTICALS INC.-APIR20130006

PATIENT
  Age: 49 Year
  Sex: Male
  Weight: 85.81 kg

DRUGS (1)
  1. ALPRAZOLAM [Suspect]
     Indication: ANXIETY
     Route: 048
     Dates: start: 20130819, end: 20130821

REACTIONS (15)
  - Condition aggravated [Recovering/Resolving]
  - Hyperhidrosis [Recovering/Resolving]
  - Respiratory disorder [Recovering/Resolving]
  - Visual impairment [Recovering/Resolving]
  - Paranoia [Recovering/Resolving]
  - Fatigue [Recovering/Resolving]
  - Feeling hot [Recovering/Resolving]
  - Dysarthria [Recovering/Resolving]
  - Confusional state [Recovering/Resolving]
  - Memory impairment [Recovering/Resolving]
  - Hallucination [Recovering/Resolving]
  - Tremor [Recovering/Resolving]
  - Insomnia [Recovered/Resolved]
  - Anxiety [Recovering/Resolving]
  - Drug ineffective [Recovering/Resolving]
